FAERS Safety Report 7207583-7 (Version None)
Quarter: 2011Q1

REPORT INFORMATION
  Report Type: 
  Country: None (occurrence: None)
  Receive Date: 20110103
  Receipt Date: 20101227
  Transmission Date: 20110831
  Serious: Yes (Other)
  Sender: FDA-Public Use
  Company Number: US-GENENTECH-311881

PATIENT

DRUGS (1)
  1. ACTIVASE [Suspect]
     Indication: BILIARY ISCHAEMIA
     Dosage: 1 MG/ML, UNK

REACTIONS (1)
  - HAEMORRHAGE [None]
